FAERS Safety Report 25914342 (Version 1)
Quarter: 2025Q4

REPORT INFORMATION
  Report Type: Spontaneous
  Country: US (occurrence: US)
  Receive Date: 20251013
  Receipt Date: 20251013
  Transmission Date: 20260118
  Serious: No
  Sender: ROCHE
  Company Number: US-ROCHE-10000405679

PATIENT
  Age: 50 Year
  Sex: Female
  Weight: 68.95 kg

DRUGS (14)
  1. XOLAIR [Suspect]
     Active Substance: OMALIZUMAB
     Indication: Product used for unknown indication
     Route: 065
  2. DUPIXENT [Suspect]
     Active Substance: DUPILUMAB
     Indication: Urticaria
     Dosage: STRENGTH:300MG/2ML
     Route: 058
  3. BUPRENORPHINE [Concomitant]
     Active Substance: BUPRENORPHINE
  4. VITAMIN D NOS [Concomitant]
     Active Substance: CHOLECALCIFEROL\ERGOCALCIFEROL
  5. IRON [Concomitant]
     Active Substance: IRON
  6. LYRICA [Concomitant]
     Active Substance: PREGABALIN
  7. CYMBALTA [Concomitant]
     Active Substance: DULOXETINE HYDROCHLORIDE
  8. AMYLASE [Concomitant]
     Active Substance: AMYLASE
  9. CELLULASE [Concomitant]
     Active Substance: CELLULASE
  10. LIPASE [Concomitant]
     Active Substance: LIPASE
  11. MALTASE [Concomitant]
  12. PROTEASE NOS [Concomitant]
  13. SUCRASE [Concomitant]
  14. LACTASE [Concomitant]
     Active Substance: LACTASE

REACTIONS (11)
  - Arthralgia [Not Recovered/Not Resolved]
  - Myalgia [Not Recovered/Not Resolved]
  - Rhinorrhoea [Recovered/Resolved]
  - Pain [Recovered/Resolved]
  - Fibromyalgia [Not Recovered/Not Resolved]
  - Rash [Recovered/Resolved]
  - Pruritus [Not Recovered/Not Resolved]
  - Somnolence [Not Recovered/Not Resolved]
  - Dysuria [Unknown]
  - Injection site discomfort [Unknown]
  - Off label use [Unknown]

NARRATIVE: CASE EVENT DATE: 20250101
